FAERS Safety Report 5815162-9 (Version None)
Quarter: 2008Q3

REPORT INFORMATION
  Report Type: 
  Country: None (occurrence: None)
  Receive Date: 20080718
  Receipt Date: 20080708
  Transmission Date: 20090109
  Serious: Yes (Life-Threatening, Hospitalization)
  Sender: FDA-Public Use
  Company Number: US-JNJFOC-20080704103

PATIENT
  Age: 38 Year
  Sex: Female
  Weight: 83.01 kg

DRUGS (5)
  1. REMICADE [Suspect]
     Indication: RHEUMATOID ARTHRITIS
     Route: 042
  2. METHOTREXATE [Concomitant]
  3. PREDNISONE TAB [Concomitant]
  4. SULINDAC [Concomitant]
  5. FOLIC ACID [Concomitant]

REACTIONS (1)
  - PERITONEAL TUBERCULOSIS [None]
